FAERS Safety Report 5984784-7 (Version None)
Quarter: 2008Q4

REPORT INFORMATION
  Report Type: 
  Country: None (occurrence: None)
  Receive Date: 20081202
  Receipt Date: 20081117
  Transmission Date: 20090506
  Serious: Yes (Hospitalization, Other)
  Sender: FDA-Public Use
  Company Number: 08-067

PATIENT
  Age: 45 Year
  Sex: Female

DRUGS (3)
  1. CEFAZOLIN [Suspect]
     Indication: ANTIBIOTIC PROPHYLAXIS
     Dosage: 1 G, ONCE + IV
     Route: 042
     Dates: start: 20070507, end: 20070507
  2. CEPHALEXIN [Suspect]
     Indication: CELLULITIS
     Dosage: 500 MG  6 HRS + ORAL
     Route: 048
     Dates: start: 20070512, end: 20070501
  3. WARFARIN SODIUM [Concomitant]

REACTIONS (2)
  - INTERNATIONAL NORMALISED RATIO INCREASED [None]
  - LEUKOCYTOCLASTIC VASCULITIS [None]
